FAERS Safety Report 9721002 (Version 2)
Quarter: 2014Q1

REPORT INFORMATION
  Report Type: Spontaneous
  Country: BR (occurrence: BR)
  Receive Date: 20131129
  Receipt Date: 20140121
  Transmission Date: 20141002
  Serious: Yes (Other)
  Sender: FDA-Public Use
  Company Number: BR-ABBVIE-13P-020-1174419-00

PATIENT
  Sex: Female
  Weight: 90 kg

DRUGS (4)
  1. SYNTHROID [Suspect]
     Indication: THYROID ADENOMA
     Route: 048
     Dates: start: 1990
  2. SYNTHROID [Suspect]
     Indication: THYROID HORMONE REPLACEMENT THERAPY
  3. LIVIAL [Suspect]
     Indication: HORMONE REPLACEMENT THERAPY
     Route: 048
     Dates: start: 201305
  4. PRISTIQ [Concomitant]
     Indication: DEPRESSION
     Route: 048
     Dates: start: 201301

REACTIONS (7)
  - Thyroidectomy [Unknown]
  - Thyroidectomy [Recovered/Resolved]
  - Thyroid adenoma [Recovered/Resolved]
  - Depression [Recovered/Resolved]
  - Menopause [Not Recovered/Not Resolved]
  - Hypertension [Not Recovered/Not Resolved]
  - Feeling hot [Not Recovered/Not Resolved]
